FAERS Safety Report 14597612 (Version 2)
Quarter: 2018Q1

REPORT INFORMATION
  Report Type: Spontaneous
  Country: US (occurrence: US)
  Receive Date: 20180305
  Receipt Date: 20180308
  Transmission Date: 20180509
  Serious: Yes (Other)
  Sender: FDA-Public Use
  Company Number: US-STRIDES ARCOLAB LIMITED-2018SP001465

PATIENT

DRUGS (1)
  1. TACROLIMUS. [Suspect]
     Active Substance: TACROLIMUS
     Indication: STEM CELL TRANSPLANT
     Dosage: UNK
     Route: 065

REACTIONS (9)
  - Acute kidney injury [Recovered/Resolved]
  - Proteinuria [Unknown]
  - Hypertension [Unknown]
  - Anaemia [Unknown]
  - Hypoxia [Recovered/Resolved]
  - Thrombotic microangiopathy [Unknown]
  - Thrombocytopenia [Recovered/Resolved]
  - Pulmonary hypertension [Unknown]
  - Off label use [Unknown]
